FAERS Safety Report 9015306 (Version 1)
Quarter: 2013Q1

REPORT INFORMATION
  Report Type: Spontaneous
  Country: US (occurrence: None)
  Receive Date: 20130103
  Receipt Date: 20130103
  Transmission Date: 20140127
  Serious: Yes (Hospitalization)
  Sender: FDA-Public Use
  Company Number: 2012SUN00379

PATIENT
  Age: 56 Year
  Sex: Male

DRUGS (3)
  1. OXYCODONE [Suspect]
     Indication: PRODUCT USED FOR UNKNOWN INDICATION
  2. XANAX [Suspect]
     Indication: PRODUCT USED FOR UNKNOWN INDICATION
  3. KLONOPIN (CLONAZEPAM) (TABLETS) [Suspect]
     Indication: PRODUCT USED FOR UNKNOWN INDICATION

REACTIONS (6)
  - Cervical myelopathy [None]
  - Intentional overdose [None]
  - Suicide attempt [None]
  - Quadriplegia [None]
  - Spinal cord injury [None]
  - Spinal cord oedema [None]
